FAERS Safety Report 15012936 (Version 2)
Quarter: 2023Q2

REPORT INFORMATION
  Report Type: Spontaneous
  Country: US (occurrence: US)
  Receive Date: 20180614
  Receipt Date: 20230627
  Transmission Date: 20230722
  Serious: Yes (Hospitalization, Other)
  Sender: FDA-Public Use
  Company Number: US-TEVA-2018-US-905509

PATIENT
  Age: 91 Year
  Sex: Female

DRUGS (1)
  1. PREDNISONE [Suspect]
     Active Substance: PREDNISONE
     Indication: Giant cell arteritis
     Route: 065

REACTIONS (4)
  - Steroid diabetes [Recovered/Resolved]
  - Delirium [Unknown]
  - Electrolyte imbalance [Unknown]
  - Urinary tract infection [Unknown]
